FAERS Safety Report 4420516-1 (Version None)
Quarter: 2004Q3

REPORT INFORMATION
  Report Type: 
  Country: None (occurrence: None)
  Receive Date: 20040809
  Receipt Date: 20040322
  Transmission Date: 20050211
  Serious: No
  Sender: FDA-Public Use
  Company Number: US-GLAXOSMITHKLINE-A0503814A

PATIENT
  Age: 49 Year
  Sex: Female

DRUGS (5)
  1. PAXIL [Suspect]
     Indication: DEPRESSION
     Dosage: 25MG PER DAY
     Route: 048
  2. TRAZODONE HCL [Concomitant]
     Indication: SLEEP DISORDER
  3. CORTEF [Concomitant]
  4. NEURONTIN [Concomitant]
  5. KLONOPIN [Concomitant]

REACTIONS (1)
  - DRUG INEFFECTIVE [None]
